FAERS Safety Report 21875544 (Version 1)
Quarter: 2023Q1

REPORT INFORMATION
  Report Type: Spontaneous
  Country: JP (occurrence: JP)
  Receive Date: 20230118
  Receipt Date: 20230118
  Transmission Date: 20230418
  Serious: Yes (Other)
  Sender: FDA-Public Use
  Company Number: JP-CELLTRION INC.-2023JP000563

PATIENT

DRUGS (7)
  1. TRASTUZUMAB [Suspect]
     Active Substance: TRASTUZUMAB
     Indication: HER2 positive breast cancer
     Dosage: 8 MG/KG (DAY 1 OF EVERY CYCLE)
  2. TRASTUZUMAB [Suspect]
     Active Substance: TRASTUZUMAB
     Dosage: DECREASED TO 6 MG/KG
  3. PERTUZUMAB [Suspect]
     Active Substance: PERTUZUMAB
     Indication: HER2 positive breast cancer
     Dosage: DAY 1 FOR THREE WEEKS OF EVERY CYCLE; THE STARTING LOADING DOSE WAS 840 MG
     Route: 042
  4. PERTUZUMAB [Suspect]
     Active Substance: PERTUZUMAB
     Dosage: DECREASED TO 420 MG IN SUBSEQUENT CYCLESDECREASED TO 420 MG IN SUBSEQUENT CYCLES
     Route: 042
  5. DOCETAXEL [Suspect]
     Active Substance: DOCETAXEL
     Indication: HER2 positive breast cancer
     Dosage: ON DAY 1 OF EVERY CYCLE AT A DOSE OF 75 MG/M2
  6. DEXAMETHASONE [Concomitant]
     Active Substance: DEXAMETHASONE
     Indication: HER2 positive breast cancer
     Dosage: 6.6 MILLIGRAM
  7. PALONOSETRON [Concomitant]
     Active Substance: PALONOSETRON
     Indication: HER2 positive breast cancer
     Dosage: 0.75 MILLIGRAM

REACTIONS (34)
  - Mitral valve disease [Unknown]
  - Cardiotoxicity [Unknown]
  - Left ventricular dysfunction [Unknown]
  - Febrile neutropenia [Unknown]
  - Neutropenia [Unknown]
  - Skin hyperpigmentation [Unknown]
  - Peripheral motor neuropathy [Unknown]
  - Cystitis noninfective [Unknown]
  - Middle ear inflammation [Unknown]
  - Alopecia [Unknown]
  - Nausea [Unknown]
  - Decreased appetite [Unknown]
  - Diarrhoea [Unknown]
  - Anaemia [Unknown]
  - Fatigue [Unknown]
  - Oedema peripheral [Unknown]
  - Pyrexia [Unknown]
  - Mucosal inflammation [Unknown]
  - Rash [Unknown]
  - Nail disorder [Unknown]
  - Pruritus [Unknown]
  - Dry skin [Unknown]
  - Palmar-plantar erythrodysaesthesia syndrome [Unknown]
  - Vomiting [Unknown]
  - Constipation [Unknown]
  - Abdominal pain [Unknown]
  - Stomatitis [Unknown]
  - Headache [Unknown]
  - Peripheral sensory neuropathy [Unknown]
  - Dysgeusia [Unknown]
  - Myalgia [Unknown]
  - Arthralgia [Unknown]
  - Cough [Unknown]
  - Herpes zoster [Unknown]
